FAERS Safety Report 26111393 (Version 1)
Quarter: 2025Q4

REPORT INFORMATION
  Report Type: Report from Study
  Country: PK (occurrence: PK)
  Receive Date: 20251202
  Receipt Date: 20251202
  Transmission Date: 20260117
  Serious: Yes (Death)
  Sender: ROCHE
  Company Number: PK-ROCHE-10000443349

PATIENT
  Age: 46 Year
  Sex: Male

DRUGS (2)
  1. AVASTIN [Suspect]
     Active Substance: BEVACIZUMAB
     Indication: Hepatocellular carcinoma
     Dosage: FREQUENCY: 3 WEEKS
     Route: 042
     Dates: start: 20250129
  2. TECENTRIQ [Suspect]
     Active Substance: ATEZOLIZUMAB
     Indication: Hepatocellular carcinoma
     Route: 042
     Dates: start: 20250129

REACTIONS (4)
  - Pain [Fatal]
  - Vomiting [Fatal]
  - Hepatic failure [Fatal]
  - Hypoxia [Fatal]
